FAERS Safety Report 17893283 (Version 1)
Quarter: 2020Q2

REPORT INFORMATION
  Report Type: Report from Study
  Country: None (occurrence: US)
  Receive Date: 20200614
  Receipt Date: 20200614
  Transmission Date: 20200714
  Serious: Yes (Hospitalization)
  Sender: FDA-Public Use
  Company Number: US-ABBVIE-20K-163-3441431-00

PATIENT
  Age: 40 Year
  Sex: Male

DRUGS (2)
  1. AZATHIOPRINE. [Concomitant]
     Active Substance: AZATHIOPRINE
     Indication: PRODUCT USED FOR UNKNOWN INDICATION
  2. HUMIRA [Suspect]
     Active Substance: ADALIMUMAB
     Indication: PRODUCT USED FOR UNKNOWN INDICATION
     Route: 058
     Dates: start: 20200428, end: 2020

REACTIONS (5)
  - Headache [Unknown]
  - Pneumonia [Unknown]
  - Weight decreased [Unknown]
  - Emphysema [Unknown]
  - Anaemia [Unknown]

NARRATIVE: CASE EVENT DATE: 202005
